FAERS Safety Report 22225183 (Version 4)
Quarter: 2023Q2

REPORT INFORMATION
  Report Type: Spontaneous
  Country: PL (occurrence: PL)
  Receive Date: 20230418
  Receipt Date: 20230503
  Transmission Date: 20230721
  Serious: Yes (Other)
  Sender: FDA-Public Use
  Company Number: PL-MYLANLABS-2023M1034464

PATIENT
  Age: 48 Year
  Sex: Male

DRUGS (8)
  1. QUETIAPINE [Suspect]
     Active Substance: QUETIAPINE
     Indication: Mania
     Dosage: 300 MG, QD (24 H)FOR THE PAST 2 YEARS
     Route: 065
  2. QUETIAPINE [Suspect]
     Active Substance: QUETIAPINE
     Indication: Hypomania
     Dosage: 200 MG, QD E (200 MG/24 H)
     Route: 065
  3. QUETIAPINE [Suspect]
     Active Substance: QUETIAPINE
     Indication: Depression
     Dosage: 100 MG, QD E (100 MG/24 H)
     Route: 065
  4. QUETIAPINE [Suspect]
     Active Substance: QUETIAPINE
     Dosage: 400 MG, QD (400 MG/24 H)
     Route: 065
  5. VALPROATE SODIUM [Suspect]
     Active Substance: VALPROATE SODIUM
     Indication: Hypomania
     Dosage: 2000 MG, QD, FOR THE PAST 2 YEARS
     Route: 065
  6. VALPROATE SODIUM [Suspect]
     Active Substance: VALPROATE SODIUM
     Indication: Mania
  7. ARIPIPRAZOLE [Concomitant]
     Active Substance: ARIPIPRAZOLE
     Indication: Hypomania
     Dosage: 15 MILLIGRAM, QD
     Route: 065
  8. ARIPIPRAZOLE [Concomitant]
     Active Substance: ARIPIPRAZOLE
     Indication: Mania
     Dosage: 30 MILLIGRAM, QD
     Route: 065

REACTIONS (10)
  - Somnolence [Recovered/Resolved]
  - Sedation complication [Recovering/Resolving]
  - Sleep disorder [Recovering/Resolving]
  - Poor quality sleep [Recovered/Resolved]
  - Intentional product use issue [Unknown]
  - Inappropriate schedule of product discontinuation [Unknown]
  - Impaired quality of life [Unknown]
  - Lethargy [Recovered/Resolved]
  - Sedation [Recovered/Resolved]
  - Irritability [Recovered/Resolved]
